FAERS Safety Report 4306809-7 (Version None)
Quarter: 2004Q1

REPORT INFORMATION
  Report Type: 
  Country: None (occurrence: None)
  Receive Date: 20040227
  Receipt Date: 20040223
  Transmission Date: 20041129
  Serious: Yes (Hospitalization)
  Sender: FDA-Public Use
  Company Number: US-BRISTOL-MYERS SQUIBB COMPANY-12513727

PATIENT
  Age: 84 Year
  Sex: Female
  Weight: 46 kg

DRUGS (5)
  1. COUMADIN [Suspect]
     Indication: DEEP VENOUS THROMBOSIS PROPHYLAXIS
     Route: 048
     Dates: start: 20020901
  2. BLINDED: ZOLEDRONIC ACID [Suspect]
     Indication: OSTEOPOROTIC FRACTURE
     Route: 042
     Dates: start: 20021106
  3. ASPIRIN [Suspect]
     Indication: ATRIAL FIBRILLATION
     Route: 048
     Dates: start: 20030401
  4. VITAMIN D [Concomitant]
  5. CALCIUM CARBONATE [Concomitant]

REACTIONS (3)
  - ATRIAL FIBRILLATION [None]
  - IMPAIRED HEALING [None]
  - TRAUMATIC HAEMATOMA [None]
